FAERS Safety Report 5780841-9 (Version None)
Quarter: 2008Q2

REPORT INFORMATION
  Report Type: 
  Country: None (occurrence: None)
  Receive Date: 20080618
  Receipt Date: 20080603
  Transmission Date: 20081010
  Serious: Yes (Hospitalization)
  Sender: FDA-Public Use
  Company Number: DSU-2008-00792

PATIENT
  Age: 72 Year
  Sex: Male
  Weight: 92.5338 kg

DRUGS (6)
  1. BENICAR HCT [Suspect]
     Indication: HYPERTENSION
     Dosage: 40/12.5 MG (QD),  PER ORAL
     Route: 048
     Dates: start: 20070101, end: 20080602
  2. PLAVIX [Concomitant]
  3. ASPIRIN (ACETYLSALICYLIC ACID) (TABLET) (ACETYLSALICYLIC ACID) [Concomitant]
  4. METOPROLOL (METOPROLOL) (TABLET) (METOPROLOL) [Concomitant]
  5. PRAVASTATIN (PRAVASTATIN) (TABLET) (PRAVASTATIN) [Concomitant]
  6. TARKA [Concomitant]

REACTIONS (4)
  - CHEST PAIN [None]
  - CORONARY ARTERIAL STENT INSERTION [None]
  - CORONARY ARTERY BYPASS [None]
  - DRUG INEFFECTIVE [None]
